FAERS Safety Report 14969550 (Version 2)
Quarter: 2018Q2

REPORT INFORMATION
  Report Type: Spontaneous
  Country: DE (occurrence: DE)
  Receive Date: 20180604
  Receipt Date: 20180607
  Transmission Date: 20180711
  Serious: Yes (Other)
  Sender: FDA-Public Use
  Company Number: DE-GILEAD-2018-0341312

PATIENT
  Age: 39 Year
  Sex: Male

DRUGS (1)
  1. ODEFSEY [Suspect]
     Active Substance: EMTRICITABINE\RILPIVIRINE HYDROCHLORIDE\TENOFOVIR ALAFENAMIDE FUMARATE
     Indication: HIV INFECTION CDC CATEGORY A
     Dosage: ^200/25/25^
     Route: 048
     Dates: start: 20170102

REACTIONS (1)
  - Essential hypertension [Recovered/Resolved]

NARRATIVE: CASE EVENT DATE: 2017
